FAERS Safety Report 15467922 (Version 2)
Quarter: 2018Q4

REPORT INFORMATION
  Report Type: Spontaneous
  Country: US (occurrence: US)
  Receive Date: 20181005
  Receipt Date: 20181029
  Transmission Date: 20190204
  Serious: No
  Sender: FDA-Public Use
  Company Number: US-SA-2018SA266977

PATIENT
  Age: 51 Year
  Sex: Female

DRUGS (1)
  1. KEVZARA [Suspect]
     Active Substance: SARILUMAB
     Indication: RHEUMATOID ARTHRITIS
     Dosage: 1.14 ML, QOW
     Route: 058
     Dates: start: 20180710

REACTIONS (4)
  - Contusion [Unknown]
  - Nausea [Not Recovered/Not Resolved]
  - Faeces discoloured [Unknown]
  - Skin lesion [Unknown]

NARRATIVE: CASE EVENT DATE: 20180919
